FAERS Safety Report 8109959-2 (Version None)
Quarter: 2012Q1

REPORT INFORMATION
  Report Type: 
  Country: None (occurrence: None)
  Receive Date: 20120202
  Receipt Date: 20120123
  Transmission Date: 20120608
  Serious: No
  Sender: FDA-Public Use
  Company Number: US-AMGEN-USASP2012004692

PATIENT
  Age: 43 Year
  Sex: Female

DRUGS (1)
  1. ENBREL [Suspect]
     Indication: RHEUMATOID ARTHRITIS
     Dosage: 50 MG, QWK
     Dates: start: 20120103

REACTIONS (8)
  - INJECTION SITE URTICARIA [None]
  - INJECTION SITE WARMTH [None]
  - INJECTION SITE REACTION [None]
  - LARYNGITIS [None]
  - INJECTION SITE ERYTHEMA [None]
  - UPPER RESPIRATORY TRACT INFECTION [None]
  - INJECTION SITE HAEMORRHAGE [None]
  - INJECTION SITE SWELLING [None]
